FAERS Safety Report 7276025-8 (Version None)
Quarter: 2011Q1

REPORT INFORMATION
  Report Type: 
  Country: None (occurrence: None)
  Receive Date: 20110204
  Receipt Date: 20110201
  Transmission Date: 20110831
  Serious: Yes (Other)
  Sender: FDA-Public Use
  Company Number: B0697667A

PATIENT
  Age: 66 Year
  Sex: Female

DRUGS (3)
  1. DECADRON [Concomitant]
     Indication: ENCEPHALITIS HERPES
     Route: 048
     Dates: start: 20110120, end: 20110122
  2. ZOVIRAX [Suspect]
     Indication: ENCEPHALITIS HERPES
     Dosage: 1500MG PER DAY
     Route: 042
     Dates: start: 20110120, end: 20110124
  3. ALEVIATIN [Concomitant]
     Indication: ENCEPHALITIS HERPES
     Route: 048
     Dates: start: 20110120, end: 20110126

REACTIONS (1)
  - RENAL DISORDER [None]
